FAERS Safety Report 19115890 (Version 1)
Quarter: 2021Q2

REPORT INFORMATION
  Report Type: Spontaneous
  Country: US (occurrence: US)
  Receive Date: 20210409
  Receipt Date: 20210409
  Transmission Date: 20210717
  Serious: Yes (Other)
  Sender: FDA-Public Use
  Company Number: US-SUN PHARMACEUTICAL INDUSTRIES LTD-2021R1-289567

PATIENT
  Age: 44 Year
  Sex: Female

DRUGS (2)
  1. OXYCODONE [Suspect]
     Active Substance: OXYCODONE
     Indication: HEADACHE
     Route: 065
  2. CAFFEINE. [Suspect]
     Active Substance: CAFFEINE
     Indication: HEADACHE
     Route: 065

REACTIONS (1)
  - Treatment failure [Recovered/Resolved]
